FAERS Safety Report 4643455-X (Version None)
Quarter: 2005Q2

REPORT INFORMATION
  Report Type: 
  Country: None (occurrence: None)
  Receive Date: 20050420
  Receipt Date: 20050420
  Transmission Date: 20051028
  Serious: Yes (Other)
  Sender: FDA-Public Use
  Company Number: None

PATIENT
  Sex: Female
  Weight: 99.7913 kg

DRUGS (1)
  1. ACETAMINOPHEN WITH PROPOXYPHENE HCL TAB [Suspect]
     Dosage: ONE - TWO PO Q4-6 HOURS PM
     Route: 048

REACTIONS (4)
  - INADEQUATE ANALGESIA [None]
  - NAUSEA [None]
  - UPPER GASTROINTESTINAL HAEMORRHAGE [None]
  - VOMITING [None]
